FAERS Safety Report 4425353-X (Version None)
Quarter: 2004Q3

REPORT INFORMATION
  Report Type: 
  Country: None (occurrence: None)
  Receive Date: 20040812
  Receipt Date: 20040812
  Transmission Date: 20050211
  Serious: Yes (Disabling)
  Sender: FDA-Public Use
  Company Number: None

PATIENT
  Age: 55 Year
  Sex: Male
  Weight: 113.8529 kg

DRUGS (3)
  1. LEVAQUIN [Suspect]
     Indication: OTITIS EXTERNA
     Dosage: 500 MG ONE PO QD
     Route: 048
     Dates: start: 20040310, end: 20040319
  2. LEVAQUIN [Suspect]
     Indication: OTITIS MEDIA
     Dosage: 500 MG ONE PO QD
     Route: 048
     Dates: start: 20040310, end: 20040319
  3. LEVAQUIN [Suspect]
     Indication: TYMPANIC MEMBRANE PERFORATION
     Dosage: 500 MG ONE PO QD
     Route: 048
     Dates: start: 20040310, end: 20040319

REACTIONS (1)
  - TENDON RUPTURE [None]
